FAERS Safety Report 14407534 (Version 1)
Quarter: 2018Q1

REPORT INFORMATION
  Report Type: Spontaneous
  Country: JP (occurrence: JP)
  Receive Date: 20180118
  Receipt Date: 20180118
  Transmission Date: 20180509
  Serious: Yes (Life-Threatening, Hospitalization, Other)
  Sender: FDA-Public Use
  Company Number: JP-009507513-1801JPN001361J

PATIENT
  Age: 26 Year
  Sex: Female

DRUGS (5)
  1. ETIZOLAM [Suspect]
     Active Substance: ETIZOLAM
     Indication: SUICIDE ATTEMPT
     Dosage: 35 MG, UNK
     Route: 048
  2. BELSOMRA [Suspect]
     Active Substance: SUVOREXANT
     Indication: SUICIDE ATTEMPT
     Dosage: 800 MG, UNK
     Route: 048
  3. MEILAX [Suspect]
     Active Substance: ETHYL LOFLAZEPATE
     Indication: SUICIDE ATTEMPT
     Dosage: 80 MG, UNK
     Route: 048
  4. RISUMIC [Concomitant]
     Active Substance: AMEZINIUM METILSULFATE
     Indication: SUICIDE ATTEMPT
     Dosage: 800 MG, UNK
     Route: 048
  5. NEULEPTIL [Suspect]
     Active Substance: PERICIAZINE
     Indication: SUICIDE ATTEMPT
     Dosage: 250 MG, UNK
     Route: 048

REACTIONS (3)
  - Intentional overdose [Unknown]
  - Toxicity to various agents [Recovered/Resolved]
  - Suicide attempt [Unknown]

NARRATIVE: CASE EVENT DATE: 20170930
